FAERS Safety Report 8816791 (Version 1)
Quarter: 2012Q4

REPORT INFORMATION
  Report Type: Spontaneous
  Country: TR (occurrence: None)
  Receive Date: 20121001
  Receipt Date: 20121001
  Transmission Date: 20130627
  Serious: Yes (Other)
  Sender: FDA-Public Use
  Company Number: 2012/146

PATIENT
  Age: 55 Month
  Sex: Male

DRUGS (2)
  1. VALPROATE [Suspect]
     Indication: COMPLEX PARTIAL SEIZURES
  2. CARBAMAZEPINE [Concomitant]

REACTIONS (9)
  - Complex partial seizures [None]
  - Ill-defined disorder [None]
  - Psychomotor hyperactivity [None]
  - Irritability [None]
  - Aggression [None]
  - Sexually inappropriate behaviour [None]
  - Increased appetite [None]
  - Logorrhoea [None]
  - Frontotemporal dementia [None]
